FAERS Safety Report 20569185 (Version 1)
Quarter: 2022Q1

REPORT INFORMATION
  Report Type: Spontaneous
  Country: ES (occurrence: None)
  Receive Date: 20220308
  Receipt Date: 20220308
  Transmission Date: 20220423
  Serious: Yes (Other)
  Sender: FDA-Public Use
  Company Number: 2022A093378

PATIENT
  Age: 644 Month
  Sex: Female

DRUGS (6)
  1. FULVESTRANT [Suspect]
     Active Substance: FULVESTRANT
     Indication: Breast cancer
     Route: 030
     Dates: start: 201902
  2. RIBOCICLIB [Suspect]
     Active Substance: RIBOCICLIB
     Indication: Breast cancer
     Route: 048
     Dates: start: 201902
  3. TAMOXIFEN [Concomitant]
     Active Substance: TAMOXIFEN
  4. TRASTUZUMAB [Concomitant]
     Active Substance: TRASTUZUMAB
  5. LETROZOLE [Concomitant]
     Active Substance: LETROZOLE
  6. EXEMESTANE [Concomitant]
     Active Substance: EXEMESTANE

REACTIONS (1)
  - Malignant neoplasm progression [Unknown]

NARRATIVE: CASE EVENT DATE: 20220201
